FAERS Safety Report 5934592-8 (Version None)
Quarter: 2008Q4

REPORT INFORMATION
  Report Type: 
  Country: None (occurrence: None)
  Receive Date: 20081029
  Receipt Date: 20081021
  Transmission Date: 20090506
  Serious: Yes (Other)
  Sender: FDA-Public Use
  Company Number: JP-ASTRAZENECA-2008AP08246

PATIENT
  Age: 51 Year
  Sex: Female

DRUGS (2)
  1. OMEPRAL [Suspect]
     Route: 048
     Dates: start: 20080415, end: 20080418
  2. MEVALOTIN [Concomitant]
     Route: 048
     Dates: start: 20070101

REACTIONS (2)
  - ALOPECIA [None]
  - RHABDOMYOLYSIS [None]
